FAERS Safety Report 7238837-6 (Version None)
Quarter: 2011Q1

REPORT INFORMATION
  Report Type: 
  Country: None (occurrence: None)
  Receive Date: 20110121
  Receipt Date: 20110111
  Transmission Date: 20110831
  Serious: Yes (Disabling, Other)
  Sender: FDA-Public Use
  Company Number: PHHY2010US83509

PATIENT
  Sex: Female

DRUGS (5)
  1. TASIGNA [Suspect]
     Indication: CHRONIC MYELOID LEUKAEMIA
     Dosage: 400 MG, BID
     Route: 048
     Dates: start: 20090101
  2. VALACICLOVIR [Concomitant]
     Dosage: UNK, QD
     Route: 048
  3. LEXAPRO [Concomitant]
     Dosage: UNK, QD
     Route: 048
  4. DIAZIDE [Concomitant]
     Indication: LIGAMENT RUPTURE
     Dosage: UNK, QD
     Route: 048
  5. ETHINYLESTRADIOL/NORGESTREL [Concomitant]
     Dosage: UNK
     Route: 048

REACTIONS (4)
  - BREAST CANCER [None]
  - NEOPLASM MALIGNANT [None]
  - AXILLARY MASS [None]
  - METASTASES TO LYMPH NODES [None]
